FAERS Safety Report 6541476-3 (Version None)
Quarter: 2010Q1

REPORT INFORMATION
  Report Type: 
  Country: None (occurrence: None)
  Receive Date: 20100118
  Receipt Date: 20100112
  Transmission Date: 20100710
  Serious: Yes (Other)
  Sender: FDA-Public Use
  Company Number: BE-ABBOTT-10P-013-0618692-00

PATIENT
  Sex: Female

DRUGS (1)
  1. HUMIRA [Suspect]
     Indication: PSORIATIC ARTHROPATHY
     Dates: start: 20070717

REACTIONS (3)
  - CERVICAL ROOT PAIN [None]
  - INTERVERTEBRAL DISC PROTRUSION [None]
  - SPINAL OSTEOARTHRITIS [None]
